FAERS Safety Report 22313779 (Version 3)
Quarter: 2023Q2

REPORT INFORMATION
  Report Type: Spontaneous
  Country: CN (occurrence: CN)
  Receive Date: 20230512
  Receipt Date: 20230518
  Transmission Date: 20230722
  Serious: Yes (Life-Threatening, Other)
  Sender: FDA-Public Use
  Company Number: CN-PFIZER INC-PV202300084038

PATIENT
  Age: 47 Year
  Sex: Male

DRUGS (9)
  1. VORICONAZOLE [Interacting]
     Active Substance: VORICONAZOLE
     Indication: Fungal infection
     Dosage: 400 MG, EVERY 12 H
     Route: 048
  2. ESOMEPRAZOLE [Interacting]
     Active Substance: ESOMEPRAZOLE
     Indication: Abdominal distension
     Dosage: 20 MG, 1X/DAY AT BEDTIME
     Route: 048
  3. ESOMEPRAZOLE [Interacting]
     Active Substance: ESOMEPRAZOLE
     Indication: Abdominal pain
  4. ESOMEPRAZOLE [Interacting]
     Active Substance: ESOMEPRAZOLE
     Indication: Gastrointestinal disorder
  5. IMIPENEM [Concomitant]
     Active Substance: IMIPENEM
     Indication: Infection
     Dosage: UNK INFUSION
     Route: 042
  6. CILASTATIN SODIUM [Concomitant]
     Active Substance: CILASTATIN SODIUM
     Indication: Infection
     Dosage: 1000 MG, 3X/DAY (EVERY 8 H)
  7. LECITHIN [Concomitant]
     Active Substance: LECITHIN
     Indication: Hepatotoxicity
     Dosage: UNK
     Route: 042
  8. ADEMETIONINE [Concomitant]
     Active Substance: ADEMETIONINE
     Indication: Hepatotoxicity
     Dosage: UNK
     Route: 042
  9. ENTECAVIR [Concomitant]
     Active Substance: ENTECAVIR
     Route: 048

REACTIONS (2)
  - Rhabdomyolysis [Recovered/Resolved]
  - Drug interaction [Recovered/Resolved]
